FAERS Safety Report 8343040 (Version 5)
Quarter: 2020Q1

REPORT INFORMATION
  Report Type: Spontaneous
  Country: US (occurrence: US)
  Receive Date: 20120119
  Receipt Date: 20200204
  Transmission Date: 20200409
  Serious: Yes (Hospitalization, Other)
  Sender: FDA-Public Use
  Company Number: US-PFIZER INC-2012012836

PATIENT
  Age: 73 Year
  Sex: Male

DRUGS (2)
  1. SUTENT [Suspect]
     Active Substance: SUNITINIB MALATE
     Indication: RENAL CANCER
     Dosage: 50 MG, CYCLIC (ONCE A DAY X 28 DAYS, 4 WEEKS ON, 2 WEEKS OFF)
     Route: 048
     Dates: start: 20111219, end: 20120102
  2. SUTENT [Suspect]
     Active Substance: SUNITINIB MALATE
     Indication: METASTATIC RENAL CELL CARCINOMA
     Dosage: UNK
     Route: 048
     Dates: start: 20120220

REACTIONS (7)
  - Muscular weakness [Unknown]
  - Hypoaesthesia [Unknown]
  - Disorientation [Unknown]
  - Hyponatraemia [Unknown]
  - Asthenia [Unknown]
  - Confusional state [Unknown]
  - Seizure [Recovering/Resolving]
